FAERS Safety Report 6806593-9 (Version None)
Quarter: 2010Q2

REPORT INFORMATION
  Report Type: 
  Country: None (occurrence: None)
  Receive Date: 20100629
  Receipt Date: 20080529
  Transmission Date: 20101027
  Serious: Yes (Other)
  Sender: FDA-Public Use
  Company Number: US-PFIZER INC-2008017990

PATIENT
  Sex: Male

DRUGS (3)
  1. VIAGRA [Suspect]
     Indication: ERECTILE DYSFUNCTION
     Route: 048
     Dates: start: 20050201
  2. VIAGRA [Suspect]
  3. VIAGRA [Suspect]

REACTIONS (2)
  - BLOOD PRESSURE DECREASED [None]
  - ERECTILE DYSFUNCTION [None]
